FAERS Safety Report 11759186 (Version 1)
Quarter: 2015Q4

REPORT INFORMATION
  Report Type: Spontaneous
  Country: US (occurrence: US)
  Receive Date: 20151120
  Receipt Date: 20151120
  Transmission Date: 20160304
  Serious: No
  Sender: FDA-Public Use
  Company Number: US-ELI_LILLY_AND_COMPANY-US201210000893

PATIENT
  Sex: Female

DRUGS (2)
  1. FORTEO [Suspect]
     Active Substance: TERIPARATIDE
     Indication: OSTEOPOROSIS
     Dosage: 20 UG, QD
  2. FORTEO [Suspect]
     Active Substance: TERIPARATIDE
     Dosage: 20 UG, QD

REACTIONS (11)
  - Muscle spasms [Unknown]
  - Ligament sprain [Unknown]
  - Neck pain [Unknown]
  - Arthralgia [Unknown]
  - Drug dose omission [Unknown]
  - Incorrect product storage [Unknown]
  - Dysstasia [Unknown]
  - Pain in extremity [Unknown]
  - Injection site pain [Unknown]
  - Musculoskeletal disorder [Unknown]
  - Pain [Unknown]
